FAERS Safety Report 9297423 (Version 1)
Quarter: 2013Q2

REPORT INFORMATION
  Report Type: Spontaneous
  Country: US (occurrence: None)
  Receive Date: 20130517
  Receipt Date: 20130517
  Transmission Date: 20140414
  Serious: No
  Sender: FDA-Public Use
  Company Number: None

PATIENT
  Age: 31 Year
  Sex: Female

DRUGS (1)
  1. HUMIRA [Suspect]
     Indication: PSORIASIS
     Dosage: Q2W, SQ
     Dates: start: 20121207, end: 20130301

REACTIONS (3)
  - Anal haemorrhage [None]
  - Headache [None]
  - No therapeutic response [None]
